FAERS Safety Report 12688387 (Version 1)
Quarter: 2016Q3

REPORT INFORMATION
  Report Type: Spontaneous
  Country: US (occurrence: None)
  Receive Date: 20160825
  Receipt Date: 20160825
  Transmission Date: 20161109
  Serious: Yes (Other)
  Sender: FDA-Public Use
  Company Number: None

PATIENT
  Age: 71 Year
  Sex: Male

DRUGS (13)
  1. SPIRONOLACTONE. [Concomitant]
     Active Substance: SPIRONOLACTONE
  2. COQ10 [Concomitant]
     Active Substance: UBIDECARENONE
  3. CLONAZEPAM. [Concomitant]
     Active Substance: CLONAZEPAM
  4. XREALTO [Concomitant]
  5. LANTUS [Concomitant]
     Active Substance: INSULIN GLARGINE
  6. PROBIOTIC [Concomitant]
     Active Substance: PROBIOTICS NOS
  7. LASIX [Concomitant]
     Active Substance: FUROSEMIDE
  8. ENTRESTO [Suspect]
     Active Substance: SACUBITRIL\VALSARTAN
  9. LISINOPRIL. [Concomitant]
     Active Substance: LISINOPRIL
  10. METFORMIN HCI [Suspect]
     Active Substance: METFORMIN HYDROCHLORIDE
  11. COREG [Concomitant]
     Active Substance: CARVEDILOL
  12. ALLOPURINOL. [Concomitant]
     Active Substance: ALLOPURINOL
  13. ASPIRIN. [Concomitant]
     Active Substance: ASPIRIN

REACTIONS (1)
  - Urine output decreased [None]

NARRATIVE: CASE EVENT DATE: 20160805
